FAERS Safety Report 9311793 (Version 1)
Quarter: 2013Q2

REPORT INFORMATION
  Report Type: Spontaneous
  Country: US (occurrence: US)
  Receive Date: 20130528
  Receipt Date: 20130528
  Transmission Date: 20140414
  Serious: Yes (Death, Other)
  Sender: FDA-Public Use
  Company Number: PHHY2013US052128

PATIENT
  Age: 27 Year
  Sex: Male

DRUGS (3)
  1. CICLOSPORIN [Suspect]
     Indication: RENAL AND PANCREAS TRANSPLANT
  2. AZATHIOPRINE [Suspect]
     Indication: RENAL AND PANCREAS TRANSPLANT
  3. MUROMONAB-CD3 [Suspect]
     Indication: RENAL AND PANCREAS TRANSPLANT

REACTIONS (5)
  - Multi-organ failure [Fatal]
  - Toxicity to various agents [Unknown]
  - Thrombocytopenia [Unknown]
  - Leukopenia [Unknown]
  - Pyrexia [Unknown]
